FAERS Safety Report 15569477 (Version 1)
Quarter: 2018Q4

REPORT INFORMATION
  Report Type: Spontaneous
  Country: US (occurrence: US)
  Receive Date: 20181030
  Receipt Date: 20181030
  Transmission Date: 20190205
  Serious: Yes (Life-Threatening, Other)
  Sender: FDA-Public Use
  Company Number: None

PATIENT
  Age: 40 Year
  Sex: Female
  Weight: 58.5 kg

DRUGS (1)
  1. TRESIBA [Suspect]
     Active Substance: INSULIN DEGLUDEC
     Indication: TYPE 1 DIABETES MELLITUS
     Dosage: ?          OTHER ROUTE:INSULIN PUMP?
     Dates: start: 20170526, end: 20180830

REACTIONS (4)
  - Weight increased [None]
  - Feeling abnormal [None]
  - Insomnia [None]
  - Appetite disorder [None]

NARRATIVE: CASE EVENT DATE: 20180105
